FAERS Safety Report 8382811-3 (Version None)
Quarter: 2012Q2

REPORT INFORMATION
  Report Type: 
  Country: None (occurrence: None)
  Receive Date: 20120524
  Receipt Date: 20120510
  Transmission Date: 20120825
  Serious: Yes (Other)
  Sender: FDA-Public Use
  Company Number: SE-JNJFOC-20120511802

PATIENT
  Sex: Female

DRUGS (2)
  1. PREDNISOLONE [Concomitant]
     Route: 065
  2. REMICADE [Suspect]
     Indication: SERONEGATIVE ARTHRITIS
     Dosage: POWDER FOR CONCENTRATE FOR SOLUTION FOR INFUSION,100 MG
     Route: 042
     Dates: start: 20000523, end: 20030101

REACTIONS (1)
  - SYSTEMIC LUPUS ERYTHEMATOSUS [None]
